FAERS Safety Report 25029378 (Version 2)
Quarter: 2025Q1

REPORT INFORMATION
  Report Type: Report from Study
  Country: US (occurrence: US)
  Receive Date: 20250303
  Receipt Date: 20250312
  Transmission Date: 20250409
  Serious: Yes (Hospitalization, Other)
  Sender: ABBVIE
  Company Number: US-ABBVIE-6149641

PATIENT
  Age: 10 Year
  Sex: Female
  Weight: 45 kg

DRUGS (3)
  1. LUPRON DEPOT [Suspect]
     Active Substance: LEUPROLIDE ACETATE
     Indication: Precocious puberty
     Dosage: FORM STRENGTH: 30 MG/PED
     Route: 030
     Dates: start: 202401
  2. AMITRIPTYLINE [Concomitant]
     Active Substance: AMITRIPTYLINE
     Indication: Product used for unknown indication
  3. DRAMAMINE [Concomitant]
     Active Substance: DIMENHYDRINATE
     Indication: Dizziness

REACTIONS (19)
  - Cerebrospinal fluid retention [Not Recovered/Not Resolved]
  - Diabetes insipidus [Recovered/Resolved]
  - Knee deformity [Not Recovered/Not Resolved]
  - Headache [Not Recovered/Not Resolved]
  - Foot deformity [Not Recovered/Not Resolved]
  - Spinal cord herniation [Not Recovered/Not Resolved]
  - Acute kidney injury [Recovered/Resolved]
  - Flat affect [Not Recovered/Not Resolved]
  - Blood pressure increased [Not Recovered/Not Resolved]
  - Abdominal pain [Not Recovered/Not Resolved]
  - Pollakiuria [Recovered/Resolved]
  - Dizziness [Not Recovered/Not Resolved]
  - Burning sensation [Not Recovered/Not Resolved]
  - Irritability [Not Recovered/Not Resolved]
  - Coordination abnormal [Not Recovered/Not Resolved]
  - Nervous system disorder [Not Recovered/Not Resolved]
  - Limb discomfort [Not Recovered/Not Resolved]
  - Laboratory test abnormal [Recovering/Resolving]
  - Dehydration [Recovered/Resolved]

NARRATIVE: CASE EVENT DATE: 20240201
